FAERS Safety Report 10151938 (Version 1)
Quarter: 2014Q2

REPORT INFORMATION
  Report Type: Spontaneous
  Country: US (occurrence: None)
  Receive Date: 20140501
  Receipt Date: 20140501
  Transmission Date: 20141212
  Serious: Yes (Hospitalization)
  Sender: FDA-Public Use
  Company Number: 2014CT000052

PATIENT
  Age: 46 Year
  Sex: Female

DRUGS (1)
  1. KORLYM [Suspect]
     Indication: CUSHING^S SYNDROME
     Route: 048
     Dates: start: 201403

REACTIONS (6)
  - Vomiting [None]
  - Diarrhoea [None]
  - Decreased appetite [None]
  - Asthenia [None]
  - Blood potassium decreased [None]
  - Gastroenteritis viral [None]
